FAERS Safety Report 20050822 (Version 1)
Quarter: 2021Q4

REPORT INFORMATION
  Report Type: Spontaneous
  Country: CN (occurrence: CN)
  Receive Date: 20211110
  Receipt Date: 20211110
  Transmission Date: 20220303
  Serious: Yes (Other)
  Sender: FDA-Public Use
  Company Number: CN-SUN PHARMACEUTICAL INDUSTRIES LTD-2021R1-316657

PATIENT
  Age: 60 Year
  Sex: Male

DRUGS (8)
  1. DEXAMETHASONE [Suspect]
     Active Substance: DEXAMETHASONE
     Indication: Chemotherapy
     Dosage: 10 MILLIGRAM
     Route: 065
  2. DEXAMETHASONE [Suspect]
     Active Substance: DEXAMETHASONE
     Indication: Hodgkin^s disease
  3. OXALIPLATIN [Suspect]
     Active Substance: OXALIPLATIN
     Indication: Chemotherapy
     Dosage: 120 MILLIGRAM/SQ. METER
     Route: 065
  4. OXALIPLATIN [Suspect]
     Active Substance: OXALIPLATIN
     Indication: Hodgkin^s disease
  5. ETOPOSIDE [Suspect]
     Active Substance: ETOPOSIDE
     Indication: Chemotherapy
     Dosage: 100 MILLIGRAM/SQ. METER
     Route: 065
  6. ETOPOSIDE [Suspect]
     Active Substance: ETOPOSIDE
     Indication: Hodgkin^s disease
  7. IFOSFAMIDE [Suspect]
     Active Substance: IFOSFAMIDE
     Indication: Chemotherapy
     Dosage: 5 GRAM PER SQUARE METRE
     Route: 065
  8. IFOSFAMIDE [Suspect]
     Active Substance: IFOSFAMIDE
     Indication: Hodgkin^s disease

REACTIONS (2)
  - Therapeutic product effect incomplete [Unknown]
  - Disease recurrence [Unknown]
